FAERS Safety Report 9422460 (Version 1)
Quarter: 2013Q3

REPORT INFORMATION
  Report Type: Spontaneous
  Country: ES (occurrence: ES)
  Receive Date: 20130726
  Receipt Date: 20130726
  Transmission Date: 20140515
  Serious: Yes (Other)
  Sender: FDA-Public Use
  Company Number: ES-NOVOPROD-383524

PATIENT
  Age: 65 Year
  Sex: Male

DRUGS (9)
  1. VICTOZA [Suspect]
     Indication: TYPE 2 DIABETES MELLITUS
     Dosage: 0.6 MG, QD
     Route: 058
     Dates: start: 20120427
  2. VICTOZA [Suspect]
     Dosage: 1.2 MG, QD
     Route: 058
  3. VICTOZA [Suspect]
     Dosage: 1.8 MG, QD
     Route: 058
     Dates: start: 20121221
  4. VICTOZA [Suspect]
     Dosage: UNK
     Route: 065
     Dates: end: 20130527
  5. ADIRO [Concomitant]
     Dosage: 100 MG, QD (0-1-0)
     Route: 065
  6. LEVEMIR [Concomitant]
     Dosage: 22 IU, QD
     Route: 065
  7. PARACETAMOL [Concomitant]
     Dosage: 650 MG, QD (0-0-1)
     Route: 065
  8. RANITIDINA [Concomitant]
     Dosage: 150 MG, QD (0-0-1)
     Route: 065
  9. VALSARTAN [Concomitant]
     Dosage: 160 MG, QD (1-0-0)
     Route: 065

REACTIONS (1)
  - Pancreatic neoplasm [Unknown]
